FAERS Safety Report 16644332 (Version 3)
Quarter: 2020Q3

REPORT INFORMATION
  Report Type: Report from Study
  Country: DE (occurrence: DE)
  Receive Date: 20190729
  Receipt Date: 20200915
  Transmission Date: 20201102
  Serious: Yes (Hospitalization)
  Sender: FDA-Public Use
  Company Number: DE-MYLANLABS-2019M1068002

PATIENT
  Sex: Female

DRUGS (9)
  1. METHOTREXATE. [Suspect]
     Active Substance: METHOTREXATE
     Dosage: 15 MILLIGRAM
     Route: 065
     Dates: start: 20170727
  2. METHOTREXATE. [Suspect]
     Active Substance: METHOTREXATE
     Indication: PRODUCT USED FOR UNKNOWN INDICATION
     Dosage: 20 MILLIGRAM
     Route: 065
     Dates: start: 20160714, end: 201803
  3. METHOTREXATE. [Suspect]
     Active Substance: METHOTREXATE
     Dosage: 15 MILLIGRAM
     Route: 065
     Dates: start: 20170120
  4. METHOTREXATE. [Suspect]
     Active Substance: METHOTREXATE
     Dosage: 15 MILLIGRAM
     Dates: start: 20180118
  5. MABTHERA [Suspect]
     Active Substance: RITUXIMAB
     Indication: PRODUCT USED FOR UNKNOWN INDICATION
     Dosage: 1000 MG, UNK
     Route: 065
     Dates: start: 201701
  6. MABTHERA [Suspect]
     Active Substance: RITUXIMAB
     Dosage: 1000 MG, UNK
     Route: 065
     Dates: start: 201607
  7. METHOTREXATE. [Suspect]
     Active Substance: METHOTREXATE
     Dosage: 7.5 MILLIGRAM
     Route: 065
     Dates: start: 20180709
  8. RIXATHON [Suspect]
     Active Substance: RITUXIMAB
     Indication: RHEUMATOID ARTHRITIS
     Dosage: 1000 MG, UNK
     Route: 042
     Dates: start: 20180413
  9. METHOTREXATE. [Suspect]
     Active Substance: METHOTREXATE
     Dosage: 20 MILLIGRAM
     Route: 065
     Dates: start: 20161004

REACTIONS (7)
  - Loose tooth [Unknown]
  - Bronchitis [Recovered/Resolved]
  - White blood cell count decreased [Unknown]
  - Upper respiratory tract infection [Unknown]
  - Nasopharyngitis [Unknown]
  - Rheumatoid arthritis [Recovered/Resolved]
  - Fibromyalgia [Recovered/Resolved]

NARRATIVE: CASE EVENT DATE: 20180626
